FAERS Safety Report 5851097-3 (Version None)
Quarter: 2008Q3

REPORT INFORMATION
  Report Type: 
  Country: None (occurrence: None)
  Receive Date: 20080820
  Receipt Date: 20080811
  Transmission Date: 20090109
  Serious: Yes (Hospitalization, Congenital Anomaly)
  Sender: FDA-Public Use
  Company Number: A0685056A

PATIENT
  Sex: Male
  Weight: 2.5 kg

DRUGS (5)
  1. PAXIL CR [Suspect]
     Indication: BIPOLAR DISORDER
     Dosage: 37.5MG TWICE PER DAY
  2. PAXIL [Suspect]
     Indication: DRUG USE FOR UNKNOWN INDICATION
  3. DIGOXIN [Concomitant]
  4. VITAMIN TAB [Concomitant]
  5. IRON SUPPLEMENT [Concomitant]

REACTIONS (5)
  - ATRIAL SEPTAL DEFECT [None]
  - DRUG EXPOSURE DURING PREGNANCY [None]
  - FOETAL HEART RATE ABNORMAL [None]
  - HEART DISEASE CONGENITAL [None]
  - VENTRICULAR SEPTAL DEFECT [None]
